FAERS Safety Report 12474029 (Version 1)
Quarter: 2016Q2

REPORT INFORMATION
  Report Type: Report from Study
  Country: CA (occurrence: CA)
  Receive Date: 20160616
  Receipt Date: 20160616
  Transmission Date: 20160815
  Serious: Yes (Other)
  Sender: FDA-Public Use
  Company Number: CA-ABBVIE-16P-028-1591653-00

PATIENT
  Sex: Male
  Weight: 95 kg

DRUGS (1)
  1. LUPRON DEPOT [Suspect]
     Active Substance: LEUPROLIDE ACETATE
     Indication: PROSTATE CANCER
     Route: 030
     Dates: start: 20141212

REACTIONS (2)
  - Prostatic specific antigen increased [Not Recovered/Not Resolved]
  - Prostate cancer metastatic [Unknown]
